FAERS Safety Report 19735998 (Version 1)
Quarter: 2021Q3

REPORT INFORMATION
  Report Type: Spontaneous
  Country: US (occurrence: US)
  Receive Date: 20210823
  Receipt Date: 20210823
  Transmission Date: 20211014
  Serious: Yes (Other)
  Sender: FDA-Public Use
  Company Number: US-HISAMITSU-2021-US-017409

PATIENT
  Sex: 0

DRUGS (1)
  1. SALONPAS?HOT CAPSICUM [Suspect]
     Active Substance: CAPSICUM
     Indication: PRODUCT USED FOR UNKNOWN INDICATION
     Dosage: 2 APPLICATIONS, 6 HOURS EACH
     Route: 061
     Dates: start: 202107

REACTIONS (2)
  - Application site burn [Unknown]
  - Application site warmth [Unknown]

NARRATIVE: CASE EVENT DATE: 202107
